FAERS Safety Report 7418784-7 (Version None)
Quarter: 2011Q2

REPORT INFORMATION
  Report Type: 
  Country: None (occurrence: None)
  Receive Date: 20110415
  Receipt Date: 20110210
  Transmission Date: 20111010
  Serious: Yes (Hospitalization)
  Sender: FDA-Public Use
  Company Number: US-VALEANT-2011VX000490

PATIENT
  Age: 64 Year
  Sex: Female
  Weight: 81 kg

DRUGS (7)
  1. VIVELLE [Concomitant]
     Route: 065
  2. PYRIDOSTIGMINE BROMIDE [Suspect]
     Indication: MYASTHENIA GRAVIS
     Route: 048
     Dates: start: 20101229, end: 20110101
  3. PYRIDOSTIGMINE BROMIDE [Suspect]
     Route: 065
  4. FOSAMAX [Concomitant]
     Route: 065
  5. XALATAN [Concomitant]
     Route: 065
  6. PYRIDOSTIGMINE BROMIDE [Concomitant]
     Route: 065
     Dates: start: 20110101
  7. PYRIDOSTIGMINE BROMIDE [Concomitant]
     Route: 065

REACTIONS (7)
  - DYSARTHRIA [None]
  - TIC [None]
  - HEAD TITUBATION [None]
  - DYSKINESIA [None]
  - PRODUCT SUBSTITUTION ISSUE [None]
  - TREMOR [None]
  - GRAND MAL CONVULSION [None]
